FAERS Safety Report 21297489 (Version 1)
Quarter: 2022Q3

REPORT INFORMATION
  Report Type: Spontaneous
  Country: US (occurrence: None)
  Receive Date: 20220902
  Receipt Date: 20220902
  Transmission Date: 20221027
  Serious: Yes (Hospitalization)
  Sender: FDA-Public Use
  Company Number: None

PATIENT
  Age: 38 Year
  Sex: Male

DRUGS (11)
  1. OPSUMIT [Suspect]
     Active Substance: MACITENTAN
     Indication: Pulmonary arterial hypertension
     Dosage: FREQUENCY : DAILY;?
     Route: 048
     Dates: start: 20200131
  2. TADALAFIL [Suspect]
     Active Substance: TADALAFIL
  3. ASPIRIN [Concomitant]
     Active Substance: ASPIRIN
  4. QUETIAPINE [Concomitant]
     Active Substance: QUETIAPINE
  5. LASIX [Concomitant]
     Active Substance: FUROSEMIDE
  6. K-TAB [Concomitant]
     Active Substance: POTASSIUM CHLORIDE
  7. BUPROPION [Concomitant]
     Active Substance: BUPROPION
  8. NALTREXONE [Concomitant]
     Active Substance: NALTREXONE
  9. GABAPENTIN [Concomitant]
     Active Substance: GABAPENTIN
  10. BIKTARVY [Concomitant]
     Active Substance: BICTEGRAVIR SODIUM\EMTRICITABINE\TENOFOVIR ALAFENAMIDE FUMARATE
  11. TRAZODONE [Concomitant]
     Active Substance: TRAZODONE HYDROCHLORIDE

REACTIONS (7)
  - Systolic dysfunction [None]
  - Anal incontinence [None]
  - Urinary incontinence [None]
  - Seizure [None]
  - Dyspnoea [None]
  - Fatigue [None]
  - Right ventricular systolic pressure increased [None]

NARRATIVE: CASE EVENT DATE: 20220827
